FAERS Safety Report 20323499 (Version 2)
Quarter: 2022Q1

REPORT INFORMATION
  Report Type: Spontaneous
  Country: RO (occurrence: RO)
  Receive Date: 20220111
  Receipt Date: 20220204
  Transmission Date: 20220424
  Serious: Yes (Other)
  Sender: FDA-Public Use
  Company Number: RO-Gedeon Richter Plc.-2021_GR_010146

PATIENT
  Age: 46 Year
  Sex: Female
  Weight: 60 kg

DRUGS (1)
  1. CARIPRAZINE HYDROCHLORIDE [Suspect]
     Active Substance: CARIPRAZINE HYDROCHLORIDE
     Indication: Schizophrenia
     Dosage: 6 MG, QD
     Route: 048
     Dates: start: 20211122, end: 20220106

REACTIONS (5)
  - Visual impairment [Unknown]
  - Delusion [Recovered/Resolved]
  - Bipolar disorder [Unknown]
  - Musculoskeletal stiffness [Recovered/Resolved]
  - Akathisia [Recovered/Resolved]

NARRATIVE: CASE EVENT DATE: 20211220
